FAERS Safety Report 23140684 (Version 1)
Quarter: 2023Q4

REPORT INFORMATION
  Report Type: Report from Study
  Country: US (occurrence: US)
  Receive Date: 20231103
  Receipt Date: 20231103
  Transmission Date: 20240110
  Serious: Yes (Hospitalization)
  Sender: FDA-Public Use
  Company Number: US-ABBVIE-5477579

PATIENT
  Age: 56 Year
  Sex: Female

DRUGS (1)
  1. HUMIRA [Suspect]
     Active Substance: ADALIMUMAB
     Indication: Ankylosing spondylitis
     Dosage: HUMIRA PEN
     Route: 058

REACTIONS (4)
  - Irritable bowel syndrome [Unknown]
  - Inflammation [Recovering/Resolving]
  - Ankylosing spondylitis [Not Recovered/Not Resolved]
  - Gastric volvulus [Recovering/Resolving]

NARRATIVE: CASE EVENT DATE: 20230802
